FAERS Safety Report 6841587-9 (Version None)
Quarter: 2010Q3

REPORT INFORMATION
  Report Type: 
  Country: None (occurrence: None)
  Receive Date: 20100714
  Receipt Date: 20070709
  Transmission Date: 20110219
  Serious: No
  Sender: FDA-Public Use
  Company Number: US-PFIZER INC-2007057435

PATIENT
  Sex: Male
  Weight: 70.8 kg

DRUGS (2)
  1. CHANTIX [Suspect]
     Indication: SMOKING CESSATION THERAPY
     Dates: start: 20070628
  2. BUPRENORPHINE HCL AND NALOXONE HCL [Concomitant]

REACTIONS (1)
  - HOT FLUSH [None]
